FAERS Safety Report 6383471-3 (Version None)
Quarter: 2009Q3

REPORT INFORMATION
  Report Type: 
  Country: None (occurrence: None)
  Receive Date: 20090929
  Receipt Date: 20090929
  Transmission Date: 20100115
  Serious: Yes (Hospitalization)
  Sender: FDA-Public Use
  Company Number: None

PATIENT
  Sex: Male
  Weight: 81.2 kg

DRUGS (1)
  1. TAXOTERE [Suspect]
     Dosage: 155 MG

REACTIONS (3)
  - FATIGUE [None]
  - FEBRILE NEUTROPENIA [None]
  - VOMITING [None]
